FAERS Safety Report 18980706 (Version 1)
Quarter: 2021Q1

REPORT INFORMATION
  Report Type: Spontaneous
  Country: US (occurrence: US)
  Receive Date: 20210306
  Receipt Date: 20210306
  Transmission Date: 20210420
  Serious: Yes (Hospitalization)
  Sender: FDA-Public Use
  Company Number: None

PATIENT
  Age: 38 Year
  Sex: Female
  Weight: 69.8 kg

DRUGS (4)
  1. 5?FLUOROURACIL [Suspect]
     Active Substance: FLUOROURACIL
     Dates: end: 20210212
  2. LEUCOVORIN CALCIUM. [Suspect]
     Active Substance: LEUCOVORIN CALCIUM
     Dates: end: 20210212
  3. ELOXATIN [Suspect]
     Active Substance: OXALIPLATIN
     Dates: end: 20210212
  4. BENTYL [Concomitant]
     Active Substance: DICYCLOMINE HYDROCHLORIDE

REACTIONS (11)
  - Pyrexia [None]
  - Abdominal pain [None]
  - Neutrophil count decreased [None]
  - Vomiting [None]
  - Large intestine perforation [None]
  - Diarrhoea [None]
  - Pulmonary embolism [None]
  - Colonic abscess [None]
  - Nausea [None]
  - Rectal haemorrhage [None]
  - Blood culture positive [None]

NARRATIVE: CASE EVENT DATE: 20210303
